FAERS Safety Report 6798120-X (Version None)
Quarter: 2010Q2

REPORT INFORMATION
  Report Type: 
  Country: None (occurrence: None)
  Receive Date: 20100623
  Receipt Date: 20100623
  Transmission Date: 20101027
  Serious: Yes (Hospitalization)
  Sender: FDA-Public Use
  Company Number: 013902

PATIENT
  Age: 56 Year
  Sex: Female

DRUGS (4)
  1. KEPPRA [Suspect]
     Indication: PARTIAL SEIZURES
     Dosage: (500 MG BID),  (750 MG BID) 500 MG, REDUCED TO 500 MG FROM 750 MG) 250 MG QD, IN THE MORNING
     Dates: start: 20090401
  2. KEPPRA [Suspect]
     Indication: PARTIAL SEIZURES
     Dosage: (500 MG BID),  (750 MG BID) 500 MG, REDUCED TO 500 MG FROM 750 MG) 250 MG QD, IN THE MORNING
     Dates: start: 20100101
  3. KEPPRA [Suspect]
     Indication: PARTIAL SEIZURES
     Dosage: (500 MG BID),  (750 MG BID) 500 MG, REDUCED TO 500 MG FROM 750 MG) 250 MG QD, IN THE MORNING
     Dates: start: 20100101
  4. KEPPRA [Suspect]
     Indication: PARTIAL SEIZURES
     Dosage: (500 MG BID),  (750 MG BID) 500 MG, REDUCED TO 500 MG FROM 750 MG) 250 MG QD, IN THE MORNING
     Dates: start: 20100101

REACTIONS (5)
  - CONVULSION [None]
  - DAYDREAMING [None]
  - DIZZINESS [None]
  - MALAISE [None]
  - WEIGHT INCREASED [None]
